FAERS Safety Report 13280686 (Version 1)
Quarter: 2017Q1

REPORT INFORMATION
  Report Type: Spontaneous
  Country: US (occurrence: US)
  Receive Date: 20170301
  Receipt Date: 20170301
  Transmission Date: 20170428
  Serious: Yes (Other)
  Sender: FDA-Public Use
  Company Number: US-INSYS THERAPEUTICS, INC-INS201604-000166

PATIENT
  Age: 51 Year
  Sex: Male
  Weight: 81.19 kg

DRUGS (3)
  1. SUBSYS [Suspect]
     Active Substance: FENTANYL
     Indication: BREAKTHROUGH PAIN
     Route: 060
  2. CISPLATIN. [Concomitant]
     Active Substance: CISPLATIN
     Indication: THROAT CANCER
  3. OXYCONTIN [Concomitant]
     Active Substance: OXYCODONE HYDROCHLORIDE
     Indication: BREAKTHROUGH PAIN

REACTIONS (5)
  - Pneumonia [Unknown]
  - Application site pain [Unknown]
  - Somnolence [Unknown]
  - Product quality issue [Unknown]
  - Pyrexia [Unknown]

NARRATIVE: CASE EVENT DATE: 20160401
